FAERS Safety Report 9103448 (Version 1)
Quarter: 2013Q1

REPORT INFORMATION
  Report Type: Spontaneous
  Country: US (occurrence: US)
  Receive Date: 20130219
  Receipt Date: 20130219
  Transmission Date: 20140127
  Serious: No
  Sender: FDA-Public Use
  Company Number: US-TEVA-385251USA

PATIENT
  Age: 67 Year
  Sex: Male
  Weight: 89.44 kg

DRUGS (14)
  1. AZILECT [Suspect]
     Indication: PARKINSON^S DISEASE
     Dosage: QD
     Route: 048
     Dates: start: 20130203
  2. LEVODOPA/CARBIDOPA [Concomitant]
     Indication: PARKINSON^S DISEASE
     Dosage: QD
     Route: 048
  3. LEVODOPA/CARBIDOPA [Concomitant]
     Dosage: 2.5 TABS X 5
  4. COMTAN [Concomitant]
     Indication: PARKINSON^S DISEASE
     Dosage: 5X/DAY
     Route: 048
  5. PRAMIPEXOLE [Concomitant]
     Indication: PARKINSON^S DISEASE
     Dosage: TID
     Route: 048
  6. BUPROPION [Concomitant]
     Indication: DEPRESSION
     Dosage: BID
     Route: 048
  7. METFORMIN [Concomitant]
     Indication: DIABETES MELLITUS
     Dosage: BID
     Route: 048
  8. CITALOPRAM [Concomitant]
     Dosage: QD
     Route: 048
  9. VITAMIN D [Concomitant]
     Indication: SUPPLEMENTATION THERAPY
     Dosage: QD
     Route: 048
  10. FISH OIL [Concomitant]
     Indication: SUPPLEMENTATION THERAPY
     Dosage: QD
     Route: 048
  11. NIACIN [Concomitant]
     Indication: HYPERLIPIDAEMIA
     Dosage: BID
     Route: 048
  12. COQ10 [Concomitant]
     Indication: SUPPLEMENTATION THERAPY
     Dosage: QD
     Route: 048
  13. ASPIRIN [Concomitant]
     Dosage: QD
     Route: 048
  14. SEROQUEL [Concomitant]
     Indication: INSOMNIA
     Dosage: QD
     Route: 048

REACTIONS (1)
  - Blood pressure increased [Unknown]
